FAERS Safety Report 14285531 (Version 2)
Quarter: 2018Q4

REPORT INFORMATION
  Report Type: Spontaneous
  Country: US (occurrence: US)
  Receive Date: 20171214
  Receipt Date: 20181213
  Transmission Date: 20190204
  Serious: No
  Sender: FDA-Public Use
  Company Number: US-ASTELLAS-2017US026119

PATIENT
  Age: 73 Year
  Sex: Female
  Weight: 48 kg

DRUGS (4)
  1. TARCEVA [Suspect]
     Active Substance: ERLOTINIB HYDROCHLORIDE
     Route: 048
     Dates: start: 20161024
  2. TARCEVA [Suspect]
     Active Substance: ERLOTINIB HYDROCHLORIDE
     Indication: ADENOCARCINOMA
     Route: 048
     Dates: start: 20150702
  3. TARCEVA [Suspect]
     Active Substance: ERLOTINIB HYDROCHLORIDE
     Indication: LUNG NEOPLASM MALIGNANT
     Route: 048
     Dates: start: 20150713
  4. TARCEVA [Suspect]
     Active Substance: ERLOTINIB HYDROCHLORIDE
     Route: 048
     Dates: start: 20161025

REACTIONS (24)
  - Feeling abnormal [Unknown]
  - Muscle spasms [Unknown]
  - Visual impairment [Unknown]
  - Impaired healing [Unknown]
  - Constipation [Unknown]
  - Dry eye [Unknown]
  - Ill-defined disorder [Unknown]
  - Fatigue [Unknown]
  - Eye disorder [Unknown]
  - Vomiting [Unknown]
  - Nausea [Unknown]
  - Gastrointestinal motility disorder [Unknown]
  - Nasal discomfort [Unknown]
  - Abnormal faeces [Unknown]
  - Nasal crusting [Unknown]
  - Cataract [Unknown]
  - Malaise [Unknown]
  - Diarrhoea [Unknown]
  - Fatigue [Unknown]
  - Accidental overdose [Unknown]
  - Rhinorrhoea [Unknown]
  - Muscle spasms [Unknown]
  - Hair texture abnormal [Unknown]
  - Rash [Unknown]

NARRATIVE: CASE EVENT DATE: 20170201
